FAERS Safety Report 9383833 (Version 1)
Quarter: 2013Q3

REPORT INFORMATION
  Report Type: Spontaneous
  Country: GE (occurrence: GE)
  Receive Date: 20130704
  Receipt Date: 20130704
  Transmission Date: 20140515
  Serious: Yes (Hospitalization)
  Sender: FDA-Public Use
  Company Number: GE-009507513-1307GEO002259

PATIENT
  Age: 56 Year
  Sex: Male

DRUGS (4)
  1. EFAVIRENZ [Suspect]
     Indication: HIV INFECTION
     Dosage: UNK
     Route: 048
  2. REBETOL [Suspect]
     Indication: HEPATITIS C
     Dosage: 1000 MG 1 DAY
     Route: 048
     Dates: start: 20130517
  3. PEGINTERFERON ALFA-2B [Suspect]
     Dosage: 120 MICROGRAM, 1 WEEK
     Route: 058
     Dates: start: 20130517
  4. TRUVADA [Suspect]
     Indication: HIV INFECTION
     Dosage: UNK
     Route: 065

REACTIONS (2)
  - Thrombocytosis [Recovered/Resolved]
  - Influenza like illness [Unknown]
